FAERS Safety Report 8065192-4 (Version None)
Quarter: 2012Q1

REPORT INFORMATION
  Report Type: 
  Country: None (occurrence: None)
  Receive Date: 20120117
  Receipt Date: 20111230
  Transmission Date: 20120608
  Serious: Yes (Other)
  Sender: FDA-Public Use
  Company Number: NO-1189743

PATIENT
  Age: 94 Year
  Sex: Female

DRUGS (6)
  1. PHENYLEPHRINE  EYE DROPS (PHENYLEPHRINE) (NONE) [Suspect]
     Indication: PREOPERATIVE CARE
     Dosage: TOPICAL
  2. MAXIDEX [Suspect]
     Indication: PREOPERATIVE CARE
     Dosage: 0.1% 5XDAY, TOPICAL
     Route: 061
  3. BETADINE [Suspect]
     Indication: PREOPERATIVE CARE
     Dosage: FOR 2 MIN BEFORE SURGERY, OPHTHALMIC
     Route: 047
  4. CEFUROXIME [Suspect]
     Indication: ANTIBIOTIC PROPHYLAXIS
     Dosage: 1 MG, INTRAOCULAR
     Route: 031
  5. CHLORAMPHENICOL [Suspect]
     Indication: ANTIBIOTIC PROPHYLAXIS
     Dosage: 0.5% 5X/DAY, TOPICAL
     Route: 061
  6. CYCLOPENTOLATE EYE DROPS (CYCLOPENTOLATE) [Suspect]
     Indication: PREOPERATIVE CARE
     Dosage: TOPICAL
     Route: 061

REACTIONS (2)
  - ENDOPHTHALMITIS [None]
  - POST PROCEDURAL COMPLICATION [None]
